FAERS Safety Report 8058566-9 (Version None)
Quarter: 2012Q1

REPORT INFORMATION
  Report Type: 
  Country: None (occurrence: None)
  Receive Date: 20120119
  Receipt Date: 20120119
  Transmission Date: 20120608
  Serious: Yes (Other)
  Sender: FDA-Public Use
  Company Number: None

PATIENT
  Age: 66 Year
  Sex: Male
  Weight: 68.0396 kg

DRUGS (3)
  1. EQUATE -NITETIME [Suspect]
     Indication: RHINORRHOEA
     Dosage: CAP FULL NIGHT BEDTIME
     Dates: start: 20111226, end: 20120102
  2. EQUATE -NITETIME [Suspect]
     Indication: COUGH
     Dosage: CAP FULL NIGHT BEDTIME
     Dates: start: 20111226, end: 20120102
  3. EQUATE -NITETIME [Suspect]
     Indication: SNEEZING
     Dosage: CAP FULL NIGHT BEDTIME
     Dates: start: 20111226, end: 20120102

REACTIONS (3)
  - DYSGEUSIA [None]
  - RENAL PAIN [None]
  - DIARRHOEA [None]
